FAERS Safety Report 7973467-X (Version None)
Quarter: 2011Q4

REPORT INFORMATION
  Report Type: 
  Country: None (occurrence: None)
  Receive Date: 20111213
  Receipt Date: 20111208
  Transmission Date: 20120403
  Serious: Yes (Other)
  Sender: FDA-Public Use
  Company Number: GB-ROXANE LABORATORIES, INC.-2011-RO-01770RO

PATIENT
  Age: 39 Year
  Sex: Female

DRUGS (5)
  1. TACROLIMUS [Suspect]
     Indication: RENAL TRANSPLANT
  2. AZATHIOPRINE [Suspect]
     Indication: RENAL TRANSPLANT
  3. PREDNISOLONE [Suspect]
     Indication: RENAL TRANSPLANT
  4. CYCLOPHOSPHAMIDE [Suspect]
     Indication: RENAL TRANSPLANT
  5. MYCOPHENOLATE MOFETIL [Suspect]
     Indication: RENAL TRANSPLANT
     Dosage: 1.5 G
     Dates: start: 20040101

REACTIONS (2)
  - HYPOGAMMAGLOBULINAEMIA [None]
  - BRONCHIECTASIS [None]
